FAERS Safety Report 5371920-9 (Version None)
Quarter: 2007Q2

REPORT INFORMATION
  Report Type: 
  Country: None (occurrence: None)
  Receive Date: 20070625
  Receipt Date: 20070607
  Transmission Date: 20071010
  Serious: Yes (Hospitalization, Other)
  Sender: FDA-Public Use
  Company Number: FSC_00118_2007

PATIENT
  Sex: Male

DRUGS (6)
  1. ISOPTIN [Suspect]
     Dosage: ORAL
     Route: 048
  2. DIGOXIN [Suspect]
     Indication: ATRIAL FIBRILLATION
     Dosage: ORAL
     Route: 048
  3. FUROSEMIDE [Suspect]
     Dosage: ORAL
     Route: 048
  4. MODURETIC (MODURETIC) (NOT SPECIFIED) [Suspect]
     Dosage: 5 MG/50 MG ORAL
     Route: 048
  5. MOVICOL/01749801 [Concomitant]
  6. WARFARIN SODIUM [Concomitant]

REACTIONS (6)
  - DEHYDRATION [None]
  - DIZZINESS [None]
  - DRUG INTERACTION INHIBITION [None]
  - FATIGUE [None]
  - PNEUMONIA [None]
  - THERAPEUTIC AGENT TOXICITY [None]
